FAERS Safety Report 5233494-2 (Version None)
Quarter: 2007Q1

REPORT INFORMATION
  Report Type: 
  Country: None (occurrence: None)
  Receive Date: 20070208
  Receipt Date: 20070129
  Transmission Date: 20070707
  Serious: Yes (Other)
  Sender: FDA-Public Use
  Company Number: JP-SANOFI-SYNTHELABO-A01200701140

PATIENT
  Age: 87 Year
  Sex: Female

DRUGS (2)
  1. MYSLEE [Suspect]
     Indication: DRUG USE FOR UNKNOWN INDICATION
     Dosage: 10 MG
     Route: 048
     Dates: end: 20060101
  2. MYSLEE [Suspect]
     Dosage: 5 MG
     Route: 048
     Dates: start: 20060101

REACTIONS (1)
  - DELIRIUM [None]
